FAERS Safety Report 7504081-8 (Version None)
Quarter: 2011Q2

REPORT INFORMATION
  Report Type: 
  Country: None (occurrence: None)
  Receive Date: 20110525
  Receipt Date: 20110520
  Transmission Date: 20111010
  Serious: Yes (Other)
  Sender: FDA-Public Use
  Company Number: US-ABBOTT-11P-163-0727395-00

PATIENT
  Sex: Male
  Weight: 113.5 kg

DRUGS (5)
  1. SIMVASTATIN [Concomitant]
     Indication: BLOOD CHOLESTEROL INCREASED
     Route: 048
  2. LANTUS [Concomitant]
     Indication: DIABETES MELLITUS
     Route: 058
  3. HUMIRA [Suspect]
     Indication: RHEUMATOID ARTHRITIS
     Route: 058
     Dates: start: 20090101, end: 20100501
  4. LEVOXYL [Concomitant]
     Indication: HYPOTHYROIDISM
     Route: 048
  5. NOVOLOG [Concomitant]
     Indication: DIABETES MELLITUS
     Dosage: 5-15MG PER SLIDING SCALE WITH MEALS
     Route: 058

REACTIONS (10)
  - PERONEAL NERVE PALSY [None]
  - CEREBROVASCULAR ACCIDENT [None]
  - PSORIASIS [None]
  - VOMITING [None]
  - DIZZINESS [None]
  - HEMIPARESIS [None]
  - SKIN ULCER [None]
  - CARDIOVASCULAR DISORDER [None]
  - ARTHRITIS [None]
  - ABASIA [None]
